FAERS Safety Report 7943214-6 (Version None)
Quarter: 2011Q4

REPORT INFORMATION
  Report Type: 
  Country: None (occurrence: None)
  Receive Date: 20111128
  Receipt Date: 20111121
  Transmission Date: 20120403
  Serious: Yes (Death, Other)
  Sender: FDA-Public Use
  Company Number: PHEH2008US05616

PATIENT
  Sex: Female
  Weight: 64.399 kg

DRUGS (39)
  1. PROMETHAZINE [Concomitant]
  2. NITROFURANTOIN [Concomitant]
  3. METHYLPREDNISOLON ^JENAPHARM^ [Concomitant]
  4. CEFADROXIL [Concomitant]
  5. ADIPEX [Concomitant]
  6. ENALAPRIL MALEATE [Concomitant]
  7. MONOPRIL [Concomitant]
  8. DOXIL [Suspect]
  9. ROBINUL FORTE [Concomitant]
  10. ALPRAZOLAM [Concomitant]
  11. ZITHROMAX [Concomitant]
  12. DICYCLOMINE [Concomitant]
  13. TOPOTECAN [Suspect]
  14. ESTRADERM [Suspect]
     Indication: HORMONE REPLACEMENT THERAPY
     Dosage: UNK
     Dates: start: 19850101, end: 20030101
  15. ESTRADIOL [Suspect]
     Indication: HORMONE REPLACEMENT THERAPY
     Dosage: UNK
     Dates: start: 19850101, end: 20030101
  16. DEXAMETHASONE [Concomitant]
  17. TAMOXIFEN CITRATE [Concomitant]
  18. BIAXIN [Concomitant]
  19. MIRALAX [Concomitant]
  20. COMPAZINE [Suspect]
  21. TAXOL [Suspect]
  22. MORPHINE [Concomitant]
  23. CIPROFLOXACIN [Concomitant]
  24. METRONIDAZOL ^ALPHARMA^ [Concomitant]
  25. SERTRALINE HYDROCHLORIDE [Concomitant]
  26. CLEOCIN HYDROCHLORIDE [Concomitant]
  27. NAPROXEN SODIUM [Concomitant]
  28. AMBIEN [Concomitant]
  29. FLUCONAZOLE [Concomitant]
  30. CYCLOBENZAPRINE [Concomitant]
  31. PREMARIN [Concomitant]
  32. CEPHALEXIN [Concomitant]
  33. TEMAZEPAM [Concomitant]
  34. IBUPROFEN [Concomitant]
  35. METROGEL [Concomitant]
  36. CARBOPLATIN [Suspect]
  37. NEULASTA [Suspect]
     Dosage: UNK
  38. ROXICET [Concomitant]
  39. CHEMOTHERAPEUTICS NOS [Concomitant]

REACTIONS (54)
  - PLEURAL EFFUSION [None]
  - HYPOKALAEMIA [None]
  - LARYNGITIS [None]
  - HYDRONEPHROSIS [None]
  - DEHYDRATION [None]
  - CHRONIC OBSTRUCTIVE PULMONARY DISEASE [None]
  - PANCYTOPENIA [None]
  - FISTULA [None]
  - MENTAL STATUS CHANGES [None]
  - ABSCESS [None]
  - PAIN [None]
  - BONE PAIN [None]
  - NAUSEA [None]
  - ABDOMINAL PAIN LOWER [None]
  - INTESTINAL OBSTRUCTION [None]
  - ASTHMA [None]
  - HYDROURETER [None]
  - CONSTIPATION [None]
  - INTESTINAL HAEMORRHAGE [None]
  - CHOLELITHIASIS [None]
  - MALNUTRITION [None]
  - PYREXIA [None]
  - DEPRESSION [None]
  - DIARRHOEA [None]
  - SPINAL OSTEOARTHRITIS [None]
  - OEDEMA [None]
  - HYPERGLYCAEMIA [None]
  - PANCREATIC DUCT DILATATION [None]
  - MUSCULAR WEAKNESS [None]
  - IMMUNOSUPPRESSION [None]
  - POSTOPERATIVE WOUND INFECTION [None]
  - CHILLS [None]
  - HYPERTENSION [None]
  - HIATUS HERNIA [None]
  - ELECTROLYTE IMBALANCE [None]
  - VOMITING [None]
  - SHORT-BOWEL SYNDROME [None]
  - NEUTROPENIA [None]
  - ANAEMIA [None]
  - ANXIETY [None]
  - FATIGUE [None]
  - FUNGAL SEPSIS [None]
  - HEPATIC STEATOSIS [None]
  - HEPATIC CYST [None]
  - DECREASED APPETITE [None]
  - CHEST PAIN [None]
  - DIZZINESS [None]
  - POISONING [None]
  - MALIGNANT NEOPLASM OF UTERINE ADNEXA [None]
  - LEFT VENTRICULAR HYPERTROPHY [None]
  - URINARY TRACT INFECTION [None]
  - OVARIAN CANCER [None]
  - SCAR [None]
  - IRON DEFICIENCY ANAEMIA [None]
